FAERS Safety Report 6206784-4 (Version None)
Quarter: 2009Q2

REPORT INFORMATION
  Report Type: 
  Country: None (occurrence: None)
  Receive Date: 20090528
  Receipt Date: 20090518
  Transmission Date: 20091009
  Serious: Yes (Life-Threatening, Hospitalization, Other)
  Sender: FDA-Public Use
  Company Number: AU-AVENTIS-200912566EU

PATIENT
  Age: 75 Year
  Sex: Male

DRUGS (10)
  1. FRUSEMIDE [Suspect]
  2. SIMVASTATIN [Suspect]
  3. PLAVIX [Suspect]
     Route: 048
     Dates: start: 20060901
  4. DIGESIC [Concomitant]
  5. CENTRUM                            /00554501/ [Concomitant]
  6. POTASSIUM CHLORIDE [Concomitant]
  7. NEXIUM [Concomitant]
  8. MONODUR [Concomitant]
  9. GLUCOSAMINE [Concomitant]
  10. FISH OIL [Concomitant]

REACTIONS (3)
  - DIZZINESS [None]
  - LOSS OF CONSCIOUSNESS [None]
  - ROAD TRAFFIC ACCIDENT [None]
